FAERS Safety Report 5376018-1 (Version None)
Quarter: 2007Q2

REPORT INFORMATION
  Report Type: 
  Country: None (occurrence: None)
  Receive Date: 20070627
  Receipt Date: 20070627
  Transmission Date: 20071010
  Serious: Yes (Death)
  Sender: FDA-Public Use
  Company Number: None

PATIENT
  Sex: Female
  Weight: 12.5 kg

DRUGS (2)
  1. RIBAVIRIN [Suspect]
     Indication: PNEUMONIA PARAINFLUENZAE VIRAL
     Dosage: 90MG Q12HOURS PO
     Route: 048
     Dates: start: 20070212
  2. PENTOSTATIN [Suspect]
     Indication: GRAFT VERSUS HOST DISEASE
     Dates: start: 20070212

REACTIONS (2)
  - LACTIC ACIDOSIS [None]
  - PANCREATITIS [None]
